FAERS Safety Report 20157796 (Version 1)
Quarter: 2021Q4

REPORT INFORMATION
  Report Type: Spontaneous
  Country: US (occurrence: US)
  Receive Date: 20211207
  Receipt Date: 20211207
  Transmission Date: 20220303
  Serious: No
  Sender: FDA-Public Use
  Company Number: US-IBSA PHARMA INC.-2021IBS000160

PATIENT

DRUGS (15)
  1. TIROSINT [Suspect]
     Active Substance: LEVOTHYROXINE SODIUM
     Indication: Post procedural hypothyroidism
     Dosage: 75 ?G, QD
     Route: 048
     Dates: start: 201910
  2. TIROSINT [Suspect]
     Active Substance: LEVOTHYROXINE SODIUM
     Dosage: 50 MCG 4 DAYS A WEEK AND 100 MCG 3 DAYS A WEEK
     Route: 048
     Dates: start: 20210520
  3. CYTOMEL [Concomitant]
     Active Substance: LIOTHYRONINE SODIUM
     Indication: Hypothyroidism
     Dosage: 5 ?G, QD
     Route: 048
  4. LYRICA [Concomitant]
     Active Substance: PREGABALIN
     Indication: Product used for unknown indication
     Dosage: UNK, QD
     Route: 048
  5. ATIVAN [Concomitant]
     Active Substance: LORAZEPAM
     Indication: Product used for unknown indication
     Dosage: UNK, QD
     Route: 048
  6. VITAMIN D                          /00318501/ [Concomitant]
     Indication: Product used for unknown indication
     Dosage: UNK
     Route: 048
  7. NASACORT [Concomitant]
     Active Substance: TRIAMCINOLONE ACETONIDE
     Indication: Product used for unknown indication
     Dosage: UNK ,AS DIRECTED
  8. PEPCID                             /00706001/ [Concomitant]
     Indication: Product used for unknown indication
     Dosage: UNK, AS DIRECTED
     Route: 048
  9. CALCIUM MAGNESIUM                  /01412301/ [Concomitant]
     Indication: Product used for unknown indication
     Dosage: UNK, AS DIRECTED
     Route: 048
  10. FISH OIL [Concomitant]
     Active Substance: FISH OIL
     Indication: Product used for unknown indication
     Dosage: UNK ,AS DIRECTED
     Route: 048
  11. VITAMIN C                          /00008001/ [Concomitant]
     Indication: Product used for unknown indication
     Dosage: UNK, AS DIRECTED
     Route: 048
  12. MULTIVITAMIN                       /00097801/ [Concomitant]
     Indication: Product used for unknown indication
     Dosage: UNK, QD
     Route: 048
  13. DIETARY SUPPLEMENT [Concomitant]
     Active Substance: DIETARY SUPPLEMENT
     Indication: Product used for unknown indication
     Dosage: UNK, AS DIRECTED
     Route: 048
  14. COENZYME Q10 [Concomitant]
     Active Substance: DIETARY SUPPLEMENT\UBIDECARENONE
     Indication: Product used for unknown indication
     Dosage: UNK, AS DIRECTED
     Route: 048
  15. VITAMIN B12 + FOLIC ACID [Concomitant]
     Indication: Product used for unknown indication
     Dosage: UNK ,AS DIRECTED
     Route: 048

REACTIONS (2)
  - Fatigue [Unknown]
  - Blood thyroid stimulating hormone decreased [Unknown]

NARRATIVE: CASE EVENT DATE: 20210101
